FAERS Safety Report 23926332 (Version 1)
Quarter: 2024Q2

REPORT INFORMATION
  Report Type: Spontaneous
  Country: US (occurrence: US)
  Receive Date: 20240531
  Receipt Date: 20240531
  Transmission Date: 20240716
  Serious: No
  Sender: FDA-Public Use
  Company Number: US-RADIUS HEALTH INC.-2023US002661

PATIENT

DRUGS (2)
  1. TYMLOS [Suspect]
     Active Substance: ABALOPARATIDE
     Indication: Senile osteoporosis
     Dosage: 80 MICROGRAM, QD
     Route: 058
     Dates: start: 202305, end: 20230608
  2. CORTICOSTEROID NOS [Suspect]
     Active Substance: CORTICOSTEROID NOS
     Indication: Back pain
     Dosage: UNK
     Dates: start: 202305

REACTIONS (9)
  - Hyperhidrosis [Unknown]
  - Chills [Unknown]
  - Brain fog [Recovered/Resolved]
  - Malaise [Unknown]
  - Muscle spasms [Unknown]
  - Nausea [Unknown]
  - Headache [Recovered/Resolved]
  - Fatigue [Recovered/Resolved]
  - Intentional product misuse [Unknown]

NARRATIVE: CASE EVENT DATE: 20230526
